FAERS Safety Report 22169600 (Version 1)
Quarter: 2023Q2

REPORT INFORMATION
  Report Type: Spontaneous
  Country: None (occurrence: US)
  Receive Date: 20230404
  Receipt Date: 20230404
  Transmission Date: 20230722
  Serious: No
  Sender: FDA-Public Use
  Company Number: US-Ajanta Pharma USA Inc.-2139854

PATIENT
  Age: 72 Year
  Sex: Female
  Weight: 63.636 kg

DRUGS (5)
  1. CHOLESTYRAMINE [Suspect]
     Active Substance: CHOLESTYRAMINE
     Indication: Bile acid malabsorption
     Route: 048
     Dates: start: 20230117, end: 20230124
  2. VITAMIN D [Concomitant]
     Active Substance: VITAMIN D NOS
  3. TYLENOL EXTRA STRENGTH [Concomitant]
     Active Substance: ACETAMINOPHEN
  4. AMLODIPINE [Concomitant]
     Active Substance: AMLODIPINE BESYLATE
  5. CLIMARA [Concomitant]
     Active Substance: ESTRADIOL

REACTIONS (8)
  - Throat irritation [Recovered/Resolved]
  - Foreign body in throat [Recovered/Resolved]
  - Oropharyngeal pain [Recovered/Resolved]
  - Dysphonia [Recovered/Resolved]
  - Off label use [Recovered/Resolved]
  - Product use complaint [Recovered/Resolved]
  - Product solubility abnormal [Recovered/Resolved]
  - Product substitution issue [Recovered/Resolved]

NARRATIVE: CASE EVENT DATE: 20230117
